FAERS Safety Report 16942251 (Version 2)
Quarter: 2020Q3

REPORT INFORMATION
  Report Type: Spontaneous
  Country: US (occurrence: US)
  Receive Date: 20191021
  Receipt Date: 20200731
  Transmission Date: 20201102
  Serious: No
  Sender: FDA-Public Use
  Company Number: US-SA-2019SA290656

PATIENT

DRUGS (1)
  1. DUPIXENT [Suspect]
     Active Substance: DUPILUMAB
     Indication: DERMATITIS ATOPIC
     Dosage: 300 MG, QOW
     Route: 058
     Dates: start: 20190301

REACTIONS (3)
  - Therapeutic response unexpected [Unknown]
  - Hypermetropia [Unknown]
  - Condition aggravated [Unknown]

NARRATIVE: CASE EVENT DATE: 201909
